FAERS Safety Report 19663460 (Version 2)
Quarter: 2021Q3

REPORT INFORMATION
  Report Type: Spontaneous
  Country: IT (occurrence: IT)
  Receive Date: 20210806
  Receipt Date: 20210818
  Transmission Date: 20211014
  Serious: Yes (Death, Hospitalization, Other)
  Sender: FDA-Public Use
  Company Number: IT-B.I. PHARMACEUTICALS,INC./RIDGEFIELD-2021-BI-119436

PATIENT
  Age: 90 Year
  Sex: Male
  Weight: 90 kg

DRUGS (2)
  1. PRAXBIND [Suspect]
     Active Substance: IDARUCIZUMAB
     Indication: UPPER GASTROINTESTINAL HAEMORRHAGE
     Dosage: 2 VIALS 2.5G/50ML
     Dates: start: 20210622, end: 20210622
  2. PRAXBIND [Suspect]
     Active Substance: IDARUCIZUMAB
     Indication: PROCOAGULANT THERAPY

REACTIONS (3)
  - Haematemesis [Fatal]
  - Melaena [Fatal]
  - Shock haemorrhagic [Fatal]

NARRATIVE: CASE EVENT DATE: 20210621
